FAERS Safety Report 10402792 (Version 4)
Quarter: 2014Q3

REPORT INFORMATION
  Report Type: Spontaneous
  Country: JP (occurrence: JP)
  Receive Date: 20140822
  Receipt Date: 20140922
  Transmission Date: 20150326
  Serious: Yes (Hospitalization, Other)
  Sender: FDA-Public Use
  Company Number: PHHY2014JP078771

PATIENT
  Age: 85 Year
  Sex: Female
  Weight: 56 kg

DRUGS (6)
  1. MAGMITT [Suspect]
     Active Substance: MAGNESIUM OXIDE
     Indication: CONSTIPATION
     Dosage: 1500 MG, DAILY
     Route: 048
  2. KARY UNI [Concomitant]
     Active Substance: PIRENOXINE
     Indication: CONSTIPATION
     Dosage: UNK UKN, UNK
     Route: 048
  3. TRAVELMIN [Suspect]
     Active Substance: DIMENHYDRINATE
     Indication: FEELING ABNORMAL
     Dosage: UKN
     Route: 048
     Dates: end: 20140618
  4. DIOVAN [Suspect]
     Active Substance: VALSARTAN
     Indication: HYPERTENSION
     Dosage: 40 MG, DAILY
     Route: 048
     Dates: start: 201401, end: 20140618
  5. MERISLON [Suspect]
     Active Substance: BETAHISTINE MESILATE
     Indication: FEELING ABNORMAL
     Dosage: 18 MG, DAILY
     Route: 048
     Dates: end: 20140618
  6. NEXIUM [Suspect]
     Active Substance: ESOMEPRAZOLE MAGNESIUM
     Indication: GASTROOESOPHAGEAL REFLUX DISEASE
     Dosage: 20 MG, DAILY
     Route: 048

REACTIONS (3)
  - Drug-induced liver injury [Unknown]
  - Hyperglycaemia [Unknown]
  - Chronic hepatitis B [Recovering/Resolving]

NARRATIVE: CASE EVENT DATE: 20140612
